FAERS Safety Report 5504592-0 (Version None)
Quarter: 2007Q4

REPORT INFORMATION
  Report Type: 
  Country: None (occurrence: None)
  Receive Date: 20071101
  Receipt Date: 20071025
  Transmission Date: 20080405
  Serious: Yes (Hospitalization)
  Sender: FDA-Public Use
  Company Number: IL-ROXANE LABORATORIES, INC-2007-BP-23355RO

PATIENT
  Age: 40 Year
  Sex: Male

DRUGS (5)
  1. METHOTREXATE [Suspect]
     Indication: PSORIATIC ARTHROPATHY
  2. ETANERCEPT [Suspect]
     Indication: PSORIATIC ARTHROPATHY
     Route: 058
  3. NONSTERIODAL ANTIINFLAMMATORY DRUGS [Suspect]
     Indication: PSORIATIC ARTHROPATHY
  4. SULFASALAZINE [Suspect]
     Indication: PSORIATIC ARTHROPATHY
  5. PREDNISONE [Concomitant]
     Route: 048

REACTIONS (2)
  - DRUG INEFFECTIVE [None]
  - PULMONARY SARCOIDOSIS [None]
